FAERS Safety Report 7670081-0 (Version None)
Quarter: 2011Q3

REPORT INFORMATION
  Report Type: 
  Country: None (occurrence: None)
  Receive Date: 20110808
  Receipt Date: 20110805
  Transmission Date: 20111222
  Serious: No
  Sender: FDA-Public Use
  Company Number: US-PFIZER INC-2011179659

PATIENT
  Sex: Female
  Weight: 56.689 kg

DRUGS (2)
  1. PRISTIQ [Suspect]
     Indication: DEPRESSION
     Dosage: 50 MG, 1X/DAY
     Route: 048
     Dates: start: 20090101, end: 20110701
  2. LOTREL [Concomitant]
     Indication: HYPERTENSION
     Dosage: [AMLODIPINE BESYLATE 5MG]/[BENAZEPRIL HYDROCHLORIDE 10MG]

REACTIONS (1)
  - MEDICATION RESIDUE [None]
